FAERS Safety Report 9796126 (Version 2)
Quarter: 2014Q1

REPORT INFORMATION
  Report Type: Spontaneous
  Country: US (occurrence: US)
  Receive Date: 20140103
  Receipt Date: 20140103
  Transmission Date: 20141002
  Serious: Yes (Hospitalization, Other)
  Sender: FDA-Public Use
  Company Number: US-BAXTER-2013BAX051471

PATIENT
  Sex: Female

DRUGS (1)
  1. DIANEAL LOW CALCIUM [Suspect]
     Indication: PERITONEAL DIALYSIS
     Route: 033
     Dates: start: 2010, end: 20131229

REACTIONS (3)
  - Abdominal hernia [Not Recovered/Not Resolved]
  - Intestinal strangulation [Not Recovered/Not Resolved]
  - Condition aggravated [Not Recovered/Not Resolved]
